FAERS Safety Report 21538023 (Version 1)
Quarter: 2022Q4

REPORT INFORMATION
  Report Type: Spontaneous
  Country: US (occurrence: None)
  Receive Date: 20221101
  Receipt Date: 20221101
  Transmission Date: 20230113
  Serious: Yes (Hospitalization)
  Sender: FDA-Public Use
  Company Number: None

PATIENT
  Age: 71 Year
  Sex: Male
  Weight: 66.7 kg

DRUGS (2)
  1. CARBOPLATIN [Suspect]
     Active Substance: CARBOPLATIN
     Dates: end: 20221025
  2. PACLITAXEL [Suspect]
     Active Substance: PACLITAXEL
     Dates: end: 20221025

REACTIONS (11)
  - Oesophageal pain [None]
  - Oesophageal pain [None]
  - Dysphagia [None]
  - Pyrexia [None]
  - Tachycardia [None]
  - Blood pressure decreased [None]
  - Neutropenia [None]
  - Anaemia [None]
  - Fibrin D dimer increased [None]
  - Oesophagitis [None]
  - Dysphagia [None]

NARRATIVE: CASE EVENT DATE: 20221028
